FAERS Safety Report 8494876-9 (Version None)
Quarter: 2012Q3

REPORT INFORMATION
  Report Type: 
  Country: None (occurrence: None)
  Receive Date: 20120709
  Receipt Date: 20120629
  Transmission Date: 20120928
  Serious: Yes (Other)
  Sender: FDA-Public Use
  Company Number: CN-ASTELLAS-2012JP005248

PATIENT
  Age: 43 Year
  Sex: Female

DRUGS (1)
  1. SOLIFENACIN SUCCINATE [Suspect]
     Indication: POLLAKIURIA
     Dosage: 5 MG, UNKNOWN/D
     Route: 048
     Dates: start: 20120605

REACTIONS (6)
  - FACE OEDEMA [None]
  - DYSPNOEA [None]
  - THROAT TIGHTNESS [None]
  - ABDOMINAL DISCOMFORT [None]
  - EYE OEDEMA [None]
  - DYSURIA [None]
